FAERS Safety Report 23981674 (Version 1)
Quarter: 2024Q2

REPORT INFORMATION
  Report Type: Spontaneous
  Country: US (occurrence: None)
  Receive Date: 20240615
  Receipt Date: 20240615
  Transmission Date: 20240716
  Serious: No
  Sender: FDA-Public Use
  Company Number: None

PATIENT
  Age: 25 Year
  Sex: Male
  Weight: 60.75 kg

DRUGS (6)
  1. IBUPROFEN [Suspect]
     Active Substance: IBUPROFEN
     Indication: Paranasal sinus inflammation
     Dosage: 1 TABLET TWICE A DAY ORAL
     Route: 048
     Dates: start: 20240609, end: 20240615
  2. IBUPROFEN [Suspect]
     Active Substance: IBUPROFEN
     Indication: Pharyngitis
  3. ALEVE [Suspect]
     Active Substance: NAPROXEN SODIUM
  4. IBUPROFEN [Concomitant]
     Active Substance: IBUPROFEN
  5. THE ORIGINAL NATURAL HERB COUGH DROPS [Concomitant]
     Active Substance: MENTHOL
  6. HERBAL COUGH DROPS [Concomitant]
     Active Substance: MENTHOL

REACTIONS (2)
  - Drug eruption [None]
  - Rash [None]

NARRATIVE: CASE EVENT DATE: 20240612
